FAERS Safety Report 4396336-3 (Version None)
Quarter: 2004Q2

REPORT INFORMATION
  Report Type: 
  Country: None (occurrence: None)
  Receive Date: 20040621
  Receipt Date: 20031119
  Transmission Date: 20050107
  Serious: Yes (Other)
  Sender: FDA-Public Use
  Company Number: USA-2003-0010911

PATIENT
  Age: 31 Year
  Sex: Male

DRUGS (4)
  1. OXYCONTIN [Suspect]
     Dosage: 30 MG , ORAL
     Route: 048
  2. DEPAKOTE [Concomitant]
  3. CONCERTA [Concomitant]
  4. CELEXA [Concomitant]

REACTIONS (9)
  - DIARRHOEA [None]
  - DRUG ABUSER [None]
  - DRUG WITHDRAWAL SYNDROME [None]
  - HYPERHIDROSIS [None]
  - INSOMNIA [None]
  - NAUSEA [None]
  - PAIN [None]
  - RESTLESSNESS [None]
  - VOMITING [None]
